FAERS Safety Report 25341734 (Version 1)
Quarter: 2025Q2

REPORT INFORMATION
  Report Type: Spontaneous
  Country: US (occurrence: US)
  Receive Date: 20250521
  Receipt Date: 20250521
  Transmission Date: 20250716
  Serious: Yes (Other)
  Sender: AUROBINDO
  Company Number: US-AUROBINDO-AUR-APL-2025-026464

PATIENT
  Age: 42 Year
  Sex: Male

DRUGS (3)
  1. FOSAPREPITANT DIMEGLUMINE [Suspect]
     Active Substance: FOSAPREPITANT DIMEGLUMINE
     Indication: Nausea
     Route: 065
  2. CEFEPIME [Concomitant]
     Active Substance: CEFEPIME HYDROCHLORIDE
     Indication: Anal abscess
     Route: 065
  3. METRONIDAZOLE [Concomitant]
     Active Substance: METRONIDAZOLE
     Indication: Fistula
     Route: 065

REACTIONS (8)
  - Anaphylactic reaction [Unknown]
  - Wheezing [Unknown]
  - Dyspnoea [Unknown]
  - Hypoxia [Unknown]
  - Periorbital oedema [Unknown]
  - Abdominal pain upper [Unknown]
  - Tachypnoea [Unknown]
  - Tachycardia [Unknown]
